FAERS Safety Report 20821980 (Version 1)
Quarter: 2022Q2

REPORT INFORMATION
  Report Type: Spontaneous
  Country: US (occurrence: US)
  Receive Date: 20220512
  Receipt Date: 20220512
  Transmission Date: 20220721
  Serious: No
  Sender: FDA-Public Use
  Company Number: US-PFIZER INC-2020222512

PATIENT
  Age: 79 Year
  Sex: Male

DRUGS (2)
  1. RETACRIT [Suspect]
     Active Substance: EPOETIN ALFA-EPBX
     Dosage: 10000 IU, MONTHLY (INJECT 10,000 UNITS OF RETACRIT FREQUENCY: ONCE A MONTH)
  2. RETACRIT [Suspect]
     Active Substance: EPOETIN ALFA-EPBX
     Dosage: 1000 IU

REACTIONS (2)
  - Disorientation [Unknown]
  - Pain [Unknown]
